FAERS Safety Report 13177281 (Version 2)
Quarter: 2017Q3

REPORT INFORMATION
  Report Type: Report from Study
  Country: FR (occurrence: FR)
  Receive Date: 20170201
  Receipt Date: 20170731
  Transmission Date: 20171127
  Serious: Yes (Other)
  Sender: FDA-Public Use
  Company Number: FR-IPSEN-CABO-16007626

PATIENT
  Age: 59 Year
  Sex: Male
  Weight: 73 kg

DRUGS (6)
  1. CABOMETYX [Suspect]
     Active Substance: CABOZANTINIB S-MALATE
     Indication: METASTATIC RENAL CELL CARCINOMA
     Dosage: 60 MG, QD
     Route: 048
     Dates: start: 20161115, end: 20161209
  2. XGEVA [Concomitant]
     Active Substance: DENOSUMAB
  3. OXYNORM [Concomitant]
     Active Substance: OXYCODONE HYDROCHLORIDE
  4. SERESTA [Concomitant]
     Active Substance: OXAZEPAM
  5. ESCITALOPRAM [Concomitant]
     Active Substance: ESCITALOPRAM OXALATE
  6. OXYCONTIN [Concomitant]
     Active Substance: OXYCODONE HYDROCHLORIDE

REACTIONS (4)
  - Hypertension [Recovering/Resolving]
  - Hypercholesterolaemia [Recovering/Resolving]
  - Eastern Cooperative Oncology Group performance status worsened [Unknown]
  - Hypothyroidism [Recovering/Resolving]

NARRATIVE: CASE EVENT DATE: 201611
